FAERS Safety Report 8957513 (Version 1)
Quarter: 2012Q4

REPORT INFORMATION
  Report Type: 
  Country: GB (occurrence: GB)
  Receive Date: 20121210
  Receipt Date: 20121210
  Transmission Date: 20130627
  Serious: Yes (Death, Life-Threatening, Hospitalization)
  Sender: FDA-Public Use
  Company Number: PHHY2012GB113198

PATIENT
  Age: 49 Year
  Sex: Male
  Weight: 73 kg

DRUGS (9)
  1. CIPROFLOXACIN [Suspect]
     Indication: PROSTATITIS
     Dosage: 250 mg, BID
     Dates: start: 20091123
  2. CIPROFLOXACIN [Suspect]
     Dosage: 250 mg, QD
     Dates: end: 20100113
  3. OFLOXACIN [Suspect]
     Indication: PROSTATITIS
     Dosage: 500 mg, UNK
     Dates: start: 20091123, end: 20100113
  4. CLARITHROMYCIN [Suspect]
     Dates: start: 20091204
  5. AMOXICILLIN\CLAVULANATE POTASSIUM [Suspect]
     Dosage: 625 mg, TID
  6. AMOXICILLIN\CLAVULANATE POTASSIUM [Suspect]
     Dosage: 625 mg, UNK
  7. NAPROXEN [Suspect]
     Dates: start: 20091204
  8. TRIMETHOPRIM [Suspect]
  9. CO-CODAMOL [Concomitant]

REACTIONS (62)
  - Completed suicide [Fatal]
  - Post-traumatic stress disorder [Unknown]
  - Panic reaction [Unknown]
  - Mental disorder [Unknown]
  - Depression [Unknown]
  - Agitation [Unknown]
  - Intracranial pressure increased [Unknown]
  - Musculoskeletal stiffness [Unknown]
  - Neuropathy peripheral [Unknown]
  - Ototoxicity [Unknown]
  - Fibromyalgia [Unknown]
  - Tendonitis [Unknown]
  - Throat tightness [Unknown]
  - Muscle spasms [Unknown]
  - Anxiety [Unknown]
  - Insomnia [Unknown]
  - Dyspnoea [Unknown]
  - Pain [Unknown]
  - Dysphagia [Unknown]
  - Speech disorder [Unknown]
  - Muscle atrophy [Unknown]
  - Arthralgia [Unknown]
  - Anhedonia [Unknown]
  - Weight decreased [Unknown]
  - Decreased appetite [Unknown]
  - Balance disorder [Unknown]
  - Muscle contractions involuntary [Unknown]
  - Constipation [Unknown]
  - Arrhythmia [Unknown]
  - Pyrexia [Unknown]
  - Toxicity to various agents [Unknown]
  - Oropharyngeal pain [Unknown]
  - Drug hypersensitivity [Unknown]
  - Rash papular [Unknown]
  - Pain in extremity [Unknown]
  - Neck pain [Unknown]
  - Paraesthesia [Unknown]
  - Hypoaesthesia [Unknown]
  - Muscle twitching [Unknown]
  - Neuralgia [Unknown]
  - Tinnitus [Recovered/Resolved]
  - Motion sickness [Unknown]
  - Hyperacusis [Unknown]
  - Burning sensation [Unknown]
  - Bone pain [Unknown]
  - Convulsion [Unknown]
  - Tremor [Unknown]
  - Feeling abnormal [Unknown]
  - Nausea [Unknown]
  - Headache [Unknown]
  - Gait disturbance [Unknown]
  - Diarrhoea [Unknown]
  - Dysaesthesia [Unknown]
  - Tachycardia [Unknown]
  - Palpitations [Unknown]
  - Asthenia [Unknown]
  - Chest pain [Unknown]
  - Malaise [Unknown]
  - Fatigue [Unknown]
  - Confusional state [Unknown]
  - Prostatitis [Unknown]
  - Pelvic pain [Unknown]
